FAERS Safety Report 10954383 (Version 1)
Quarter: 2015Q1

REPORT INFORMATION
  Report Type: Spontaneous
  Country: DE (occurrence: DE)
  Receive Date: 20150325
  Receipt Date: 20150325
  Transmission Date: 20150721
  Serious: Yes (Hospitalization, Other)
  Sender: FDA-Public Use
  Company Number: DE-TEVA-548180GER

PATIENT
  Age: 72 Year
  Sex: Female
  Weight: 72.4 kg

DRUGS (2)
  1. RANITIDIN-RATIOPHARM 50MG/5ML INJEKTIONSLOESUNG [Suspect]
     Active Substance: RANITIDINE HYDROCHLORIDE
     Indication: OVARIAN CANCER
     Dates: start: 20150219
  2. DEXAMETHASON [Concomitant]
     Active Substance: DEXAMETHASONE
     Indication: OVARIAN CANCER

REACTIONS (11)
  - Malaise [Recovered/Resolved]
  - Pruritus generalised [Recovered/Resolved]
  - Loss of consciousness [Recovered/Resolved]
  - Seizure [Recovered/Resolved]
  - Chest discomfort [Recovered/Resolved]
  - Dyspnoea [Recovered/Resolved]
  - Defaecation urgency [Recovered/Resolved]
  - Eyelid oedema [Recovered/Resolved]
  - Blood pressure immeasurable [Recovered/Resolved]
  - Mydriasis [Recovered/Resolved]
  - Visual impairment [Recovered/Resolved]

NARRATIVE: CASE EVENT DATE: 20150219
